FAERS Safety Report 8233432-4 (Version None)
Quarter: 2012Q1

REPORT INFORMATION
  Report Type: 
  Country: None (occurrence: None)
  Receive Date: 20120326
  Receipt Date: 20120320
  Transmission Date: 20120608
  Serious: Yes (Other)
  Sender: FDA-Public Use
  Company Number: US-CELGENEUS-163-21880-12032396

PATIENT
  Sex: Male

DRUGS (25)
  1. DEXAMETHASONE [Concomitant]
     Route: 065
  2. FLUCONAZOLE [Concomitant]
     Route: 065
  3. KEPPRA [Concomitant]
     Route: 065
  4. ZOFRAN [Concomitant]
     Route: 065
  5. ZOLPIDEM [Concomitant]
     Route: 065
  6. BENADRYL [Concomitant]
     Route: 065
  7. CLINDAMYCIN [Concomitant]
     Route: 065
  8. APAP TAB [Concomitant]
     Route: 065
  9. CALCITRIOL [Concomitant]
     Route: 065
  10. NIFEREX [Concomitant]
     Route: 065
  11. LAMICTAL [Concomitant]
     Route: 065
  12. LAMOTRIGINE [Concomitant]
     Route: 065
  13. LORAZEPAM [Concomitant]
     Route: 065
  14. RETIN-A [Concomitant]
     Route: 065
  15. ASPIRIN [Concomitant]
     Route: 065
  16. ACYCLOVIR [Concomitant]
     Route: 065
  17. LIDOCAINE [Concomitant]
     Route: 065
  18. MYCOPHENOLATE MOFETIL (CELLCEPT) [Concomitant]
     Route: 065
  19. VANCOMYCIN [Concomitant]
     Route: 065
  20. REVLIMID [Suspect]
     Dosage: 5 MILLIGRAM
     Route: 048
     Dates: start: 20120121
  21. ALLOPURINOL [Concomitant]
     Route: 065
  22. ALPRAZOLAM [Concomitant]
     Route: 065
  23. FENTANYL [Concomitant]
     Route: 065
  24. GUAIFENESIN [Concomitant]
     Route: 065
  25. SINGULAIR [Concomitant]
     Route: 065

REACTIONS (2)
  - CONVULSION [None]
  - IRRITABILITY [None]
